FAERS Safety Report 23296862 (Version 1)
Quarter: 2023Q4

REPORT INFORMATION
  Report Type: Spontaneous
  Country: IT (occurrence: IT)
  Receive Date: 20231214
  Receipt Date: 20231214
  Transmission Date: 20240109
  Serious: Yes (Other)
  Sender: FDA-Public Use
  Company Number: None

PATIENT
  Age: 63 Year
  Sex: Female

DRUGS (3)
  1. CARBOPLATIN [Suspect]
     Active Substance: CARBOPLATIN
     Indication: Triple negative breast cancer
     Dosage: 150 MILLIGRAM
     Route: 042
     Dates: start: 20231011, end: 20231011
  2. PACLITAXEL [Suspect]
     Active Substance: PACLITAXEL
     Indication: Triple negative breast cancer
     Dosage: 130 MILLIGRAM
     Route: 042
     Dates: start: 20231011, end: 20231011
  3. KEYTRUDA [Concomitant]
     Active Substance: PEMBROLIZUMAB
     Indication: Product used for unknown indication
     Dosage: UNK
     Route: 065

REACTIONS (4)
  - Malaise [Unknown]
  - Flushing [Unknown]
  - Tachycardia [Unknown]
  - Hypertension [Unknown]

NARRATIVE: CASE EVENT DATE: 20231011
